FAERS Safety Report 9756625 (Version 1)
Quarter: 2013Q4

REPORT INFORMATION
  Report Type: Spontaneous
  Country: US (occurrence: US)
  Receive Date: 20131213
  Receipt Date: 20131213
  Transmission Date: 20140711
  Serious: Yes (Hospitalization, Other)
  Sender: FDA-Public Use
  Company Number: US-PFIZER INC-2013356291

PATIENT
  Sex: Male

DRUGS (1)
  1. TIKOSYN [Suspect]
     Dosage: 500 UG, 2X/DAY

REACTIONS (6)
  - Fall [Unknown]
  - Joint injury [Unknown]
  - Neck injury [Unknown]
  - Joint injury [Unknown]
  - Blood magnesium decreased [Recovered/Resolved]
  - Renal disorder [Unknown]
